FAERS Safety Report 7259588-8 (Version None)
Quarter: 2011Q1

REPORT INFORMATION
  Report Type: 
  Country: None (occurrence: None)
  Receive Date: 20110130
  Receipt Date: 20101105
  Transmission Date: 20110831
  Serious: No
  Sender: FDA-Public Use
  Company Number: PR-ABBOTT-10P-131-0683481-00

PATIENT
  Sex: Female
  Weight: 67.192 kg

DRUGS (6)
  1. ACTOS [Concomitant]
     Indication: DIABETES MELLITUS
     Route: 048
  2. ATACAND [Concomitant]
     Indication: ARRHYTHMIA
     Route: 048
  3. METOPROLOL [Concomitant]
     Indication: ARRHYTHMIA
     Route: 048
  4. SYNTHROID [Concomitant]
     Indication: HYPOTHYROIDISM
     Route: 048
  5. HUMIRA [Suspect]
     Indication: RHEUMATOID ARTHRITIS
     Route: 058
     Dates: start: 20100601
  6. CAPOTEN [Concomitant]
     Indication: ARRHYTHMIA
     Route: 048

REACTIONS (7)
  - INJECTION SITE PRURITUS [None]
  - RASH PRURITIC [None]
  - RESPIRATORY TRACT CONGESTION [None]
  - URINARY TRACT INFLAMMATION [None]
  - URINARY TRACT INFECTION [None]
  - HAEMATURIA [None]
  - INJECTION SITE RASH [None]
